FAERS Safety Report 9026911 (Version 1)
Quarter: 2013Q1

REPORT INFORMATION
  Report Type: Spontaneous
  Country: US (occurrence: US)
  Receive Date: 20130123
  Receipt Date: 20130123
  Transmission Date: 20140127
  Serious: No
  Sender: FDA-Public Use
  Company Number: US-PFIZER INC-2013024440

PATIENT
  Age: 53 Year
  Sex: Female
  Weight: 47.62 kg

DRUGS (2)
  1. RAPAMUNE [Suspect]
     Indication: RENAL TRANSPLANT
     Dosage: 1 MG, DAILY
     Dates: start: 200602
  2. CARDIZEM [Concomitant]
     Indication: HYPERTENSION
     Dosage: 300 MG, DAILY

REACTIONS (4)
  - Cough [Not Recovered/Not Resolved]
  - Dyspnoea [Recovering/Resolving]
  - Rhinorrhoea [Unknown]
  - Sinus disorder [Unknown]
